FAERS Safety Report 11162794 (Version 1)
Quarter: 2015Q2

REPORT INFORMATION
  Report Type: Spontaneous
  Country: US (occurrence: None)
  Receive Date: 20150603
  Receipt Date: 20150603
  Transmission Date: 20150821
  Serious: No
  Sender: FDA-Public Use
  Company Number: None

PATIENT
  Age: 51 Year
  Sex: Female

DRUGS (1)
  1. STIVARGA [Suspect]
     Active Substance: REGORAFENIB
     Indication: COLORECTAL CANCER
     Route: 048
     Dates: start: 20150529

REACTIONS (7)
  - Activities of daily living impaired [None]
  - Dysphonia [None]
  - Fatigue [None]
  - Chromaturia [None]
  - Tearfulness [None]
  - Chest pain [None]
  - Decreased appetite [None]

NARRATIVE: CASE EVENT DATE: 20150601
